FAERS Safety Report 11894611 (Version 1)
Quarter: 2016Q1

REPORT INFORMATION
  Report Type: Spontaneous
  Country: IT (occurrence: IT)
  Receive Date: 20160107
  Receipt Date: 20160107
  Transmission Date: 20160526
  Serious: Yes (Hospitalization)
  Sender: FDA-Public Use
  Company Number: IT-ACTAVIS-2015-29073

PATIENT
  Age: 2 Year
  Sex: Male

DRUGS (2)
  1. IBUPROFEN (UNKNOWN) [Suspect]
     Active Substance: IBUPROFEN
     Indication: PRODUCT USED FOR UNKNOWN INDICATION
     Dosage: UNK
     Route: 065
     Dates: start: 20151019, end: 20151021
  2. PARACETAMOL  (UNKNOWN) [Suspect]
     Active Substance: ACETAMINOPHEN
     Indication: PYREXIA
     Dosage: UNK
     Route: 054
     Dates: start: 20151019, end: 20151021

REACTIONS (2)
  - Pyrexia [Unknown]
  - Haematuria [Unknown]

NARRATIVE: CASE EVENT DATE: 20151020
